FAERS Safety Report 6874012-2 (Version None)
Quarter: 2010Q4

REPORT INFORMATION
  Report Type: 
  Country: None (occurrence: None)
  Receive Date: 20100721
  Receipt Date: 20100701
  Transmission Date: 20110411
  Serious: Yes (Other)
  Sender: FDA-Public Use
  Company Number: JPI-P-010923

PATIENT
  Age: 50 Year
  Sex: Female

DRUGS (8)
  1. XYREM [Suspect]
     Indication: ABNORMAL SLEEP-RELATED EVENT
     Dosage: SEE IMAGE
     Route: 048
     Dates: start: 20100525, end: 20100601
  2. XYREM [Suspect]
     Indication: SLEEP DISORDER
     Dosage: SEE IMAGE
     Route: 048
     Dates: start: 20100525, end: 20100601
  3. XYREM [Suspect]
     Indication: ABNORMAL SLEEP-RELATED EVENT
     Dosage: SEE IMAGE
     Route: 048
     Dates: start: 20100601, end: 20100601
  4. XYREM [Suspect]
     Indication: SLEEP DISORDER
     Dosage: SEE IMAGE
     Route: 048
     Dates: start: 20100601, end: 20100601
  5. XYREM [Suspect]
     Indication: ABNORMAL SLEEP-RELATED EVENT
     Dosage: SEE IMAGE
     Route: 048
     Dates: start: 20100601, end: 20100601
  6. XYREM [Suspect]
     Indication: SLEEP DISORDER
     Dosage: SEE IMAGE
     Route: 048
     Dates: start: 20100601, end: 20100601
  7. DULOXETINE HYDROCHLORIDE [Suspect]
     Indication: DEPRESSION
     Dosage: ORAL
     Route: 048
  8. MILNACIPRAN HYDROCHLORIDE [Suspect]
     Indication: DEPRESSION
     Dosage: ORAL
     Route: 048
     Dates: end: 20100601

REACTIONS (4)
  - ANURIA [None]
  - RENAL DISORDER [None]
  - SEROTONIN SYNDROME [None]
  - WRONG TECHNIQUE IN DRUG USAGE PROCESS [None]
